FAERS Safety Report 4325366-2 (Version None)
Quarter: 2004Q1

REPORT INFORMATION
  Report Type: 
  Country: None (occurrence: None)
  Receive Date: 20040324
  Receipt Date: 20040309
  Transmission Date: 20041129
  Serious: Yes (Hospitalization)
  Sender: FDA-Public Use
  Company Number: AU-JNJFOC-20040303539

PATIENT
  Age: 83 Year
  Sex: Female

DRUGS (7)
  1. TRAMADOL HCL [Suspect]
     Indication: DRUG USE FOR UNKNOWN INDICATION
  2. ACETAMINOPHEN [Concomitant]
  3. TEMAZEPAM [Concomitant]
  4. LOSEC (OMEPRAZOLE) [Concomitant]
  5. DUROLAX (BISACODYL) [Concomitant]
  6. ROCALCITROL (CALCITRIOL) [Concomitant]
  7. OROXINE (LEVOTHYROXINE SODIUM) [Concomitant]

REACTIONS (1)
  - HYPONATRAEMIA [None]
